FAERS Safety Report 24236002 (Version 5)
Quarter: 2024Q4

REPORT INFORMATION
  Report Type: Report from Study
  Country: BR (occurrence: BR)
  Receive Date: 20240822
  Receipt Date: 20241112
  Transmission Date: 20250115
  Serious: Yes (Life-Threatening, Hospitalization)
  Sender: JOHNSON AND JOHNSON
  Company Number: BR-JNJFOC-20240843388

PATIENT
  Age: 19 Year
  Sex: Male
  Weight: 50 kg

DRUGS (2)
  1. INFLIXIMAB [Suspect]
     Active Substance: INFLIXIMAB
     Indication: Colitis ulcerative
     Route: 041
     Dates: start: 202306
  2. REMICADE [Suspect]
     Active Substance: INFLIXIMAB
     Indication: Colitis ulcerative
     Route: 041

REACTIONS (11)
  - Septic shock [Recovering/Resolving]
  - Oxygen saturation decreased [Unknown]
  - Decreased immune responsiveness [Unknown]
  - Pneumonia [Recovered/Resolved]
  - Herpes oesophagitis [Recovered/Resolved]
  - Colitis [Unknown]
  - Anaemia [Unknown]
  - Rhinorrhoea [Recovering/Resolving]
  - Weight increased [Unknown]
  - Product dose omission issue [Unknown]
  - Off label use [Unknown]

NARRATIVE: CASE EVENT DATE: 20240101
